FAERS Safety Report 14124272 (Version 1)
Quarter: 2017Q4

REPORT INFORMATION
  Report Type: Spontaneous
  Country: US (occurrence: US)
  Receive Date: 20171025
  Receipt Date: 20171025
  Transmission Date: 20180321
  Serious: No
  Sender: FDA-Public Use
  Company Number: US-GLENMARK PHARMACEUTICALS-2016GMK024523

PATIENT

DRUGS (1)
  1. HYDROCORTISONE BUTYRATE. [Suspect]
     Active Substance: HYDROCORTISONE BUTYRATE
     Indication: SEBORRHOEIC DERMATITIS
     Dosage: APPLY AS NEEDED FOR FLARE UP ON NOSE, SIDES OF NOSE, CHEEK NEXT TO NOSE
     Route: 061
     Dates: start: 201608

REACTIONS (5)
  - Skin disorder [Not Recovered/Not Resolved]
  - Application site reaction [Not Recovered/Not Resolved]
  - Product use in unapproved indication [Unknown]
  - Drug administered at inappropriate site [Unknown]
  - Application site discolouration [Not Recovered/Not Resolved]

NARRATIVE: CASE EVENT DATE: 201608
